FAERS Safety Report 6072847-X (Version None)
Quarter: 2009Q1

REPORT INFORMATION
  Report Type: 
  Country: None (occurrence: None)
  Receive Date: 20090205
  Receipt Date: 20090129
  Transmission Date: 20090719
  Serious: Yes (Life-Threatening, Hospitalization)
  Sender: FDA-Public Use
  Company Number: CLOF-1000404

PATIENT
  Age: 66 Year
  Sex: Female

DRUGS (9)
  1. CLOFARABINE (CLOFARABINE) TABLET [Suspect]
     Indication: MYELODYSPLASTIC SYNDROME
     Dosage: 1 MG, QD, ORAL
     Route: 048
     Dates: start: 20081120, end: 20081129
  2. CLOFARABINE (CLOFARABINE) TABLET [Suspect]
     Indication: MYELODYSPLASTIC SYNDROME
     Dosage: 1 MG, QD, ORAL
     Route: 048
     Dates: start: 20090101, end: 20090110
  3. DESFERAL [Concomitant]
  4. LORTAB [Concomitant]
  5. CALCIUM D (ASCORBIC ACID, CALCIUM GLUCONATE, CALCIUM LACTATE, CALCIUM [Concomitant]
  6. MULTIVITAMIN [Concomitant]
  7. ACETAMINOPHEN [Concomitant]
  8. SOLU-CORTEF [Concomitant]
  9. NEUPOGEN [Concomitant]

REACTIONS (11)
  - BONE PAIN [None]
  - FEBRILE NEUTROPENIA [None]
  - GRANULOCYTE COUNT DECREASED [None]
  - HAEMOGLOBIN DECREASED [None]
  - HEADACHE [None]
  - JOINT EFFUSION [None]
  - JOINT SWELLING [None]
  - RADIUS FRACTURE [None]
  - TENDON RUPTURE [None]
  - THROMBOCYTOPENIA [None]
  - TINEA INFECTION [None]
